FAERS Safety Report 11010558 (Version 1)
Quarter: 2015Q2

REPORT INFORMATION
  Report Type: Spontaneous
  Country: US (occurrence: US)
  Receive Date: 20150410
  Receipt Date: 20150410
  Transmission Date: 20150821
  Serious: No
  Sender: FDA-Public Use
  Company Number: US-BAYER-2015-062135

PATIENT
  Age: 30 Year
  Sex: Female

DRUGS (2)
  1. MAGNEVIST [Suspect]
     Active Substance: GADOPENTETATE DIMEGLUMINE
     Indication: ARTHROGRAM
     Dosage: UNK, ONCE
     Dates: start: 20150320, end: 20150320
  2. SALINE [Concomitant]
     Active Substance: SODIUM CHLORIDE
     Dosage: UNK
     Dates: start: 20150320, end: 20150320

REACTIONS (2)
  - Product use issue [None]
  - Wrong technique in drug usage process [None]

NARRATIVE: CASE EVENT DATE: 20150320
